FAERS Safety Report 24910811 (Version 1)
Quarter: 2025Q1

REPORT INFORMATION
  Report Type: Spontaneous
  Country: US (occurrence: US)
  Receive Date: 20250131
  Receipt Date: 20250131
  Transmission Date: 20250409
  Serious: Yes (Other)
  Sender: JOHNSON AND JOHNSON
  Company Number: US-JNJFOC-20250158608

PATIENT
  Age: 86 Year
  Sex: Female

DRUGS (3)
  1. RISPERDAL [Suspect]
     Active Substance: RISPERIDONE
     Indication: Bipolar disorder
     Route: 065
  2. CAPLYTA [Concomitant]
     Active Substance: LUMATEPERONE
  3. LYRICA [Concomitant]
     Active Substance: PREGABALIN

REACTIONS (4)
  - Dementia Alzheimer^s type [Unknown]
  - Depression [Unknown]
  - Panic attack [Unknown]
  - Loss of personal independence in daily activities [Unknown]
